FAERS Safety Report 19841848 (Version 4)
Quarter: 2022Q1

REPORT INFORMATION
  Report Type: Report from Study
  Country: US (occurrence: US)
  Receive Date: 20210915
  Receipt Date: 20220211
  Transmission Date: 20220423
  Serious: Yes (Other)
  Sender: FDA-Public Use
  Company Number: US-NOVARTISPH-NVSC2021US204152

PATIENT
  Sex: Female

DRUGS (2)
  1. KESIMPTA [Suspect]
     Active Substance: OFATUMUMAB
     Indication: Multiple sclerosis
     Dosage: 20 MG, BENEATH SKIN VIA INJECTION
     Route: 058
     Dates: start: 20210222
  2. DULOXETINE [Suspect]
     Active Substance: DULOXETINE
     Indication: Product used for unknown indication
     Dosage: DECREASING DOSE
     Route: 065

REACTIONS (4)
  - Neuropathy peripheral [Unknown]
  - Arthropathy [Unknown]
  - Gout [Unknown]
  - Hyperhidrosis [Unknown]
